FAERS Safety Report 14656011 (Version 1)
Quarter: 2018Q1

REPORT INFORMATION
  Report Type: Spontaneous
  Country: CA (occurrence: CA)
  Receive Date: 20180319
  Receipt Date: 20180319
  Transmission Date: 20180509
  Serious: Yes (Disabling)
  Sender: FDA-Public Use
  Company Number: CA-MYLANLABS-2018M1017471

PATIENT
  Age: 47 Year
  Sex: Female

DRUGS (6)
  1. ESTROGEL [Suspect]
     Active Substance: ESTRADIOL
     Dosage: 3/4 PUMP, QD
     Route: 061
     Dates: start: 201310
  2. TYLENOL [Concomitant]
     Active Substance: ACETAMINOPHEN
     Indication: MIGRAINE
     Dosage: UNK
  3. 5-HTP                              /00439301/ [Concomitant]
     Active Substance: OXITRIPTAN
     Indication: PRODUCT USED FOR UNKNOWN INDICATION
     Dosage: UNK
  4. ESTROGEL [Suspect]
     Active Substance: ESTRADIOL
     Indication: UTERINE OPERATION
     Dosage: 1 PUMP, QD
     Route: 061
     Dates: start: 201111
  5. PROGESTERONE. [Suspect]
     Active Substance: PROGESTERONE
     Indication: UTERINE OPERATION
     Dosage: 1 DF, QD
     Route: 048
     Dates: start: 201111
  6. OMEGA-3 MARINE TRIGLYCERIDES [Concomitant]
     Active Substance: FISH OIL
     Indication: PRODUCT USED FOR UNKNOWN INDICATION
     Dosage: UNK

REACTIONS (7)
  - Neuralgia [Unknown]
  - Product use in unapproved indication [Unknown]
  - Underdose [Unknown]
  - Breast pain [Unknown]
  - Oedema [Unknown]
  - Plantar fasciitis [Unknown]
  - Migraine with aura [Recovered/Resolved]

NARRATIVE: CASE EVENT DATE: 201302
